FAERS Safety Report 9907997 (Version 2)
Quarter: 2014Q1

REPORT INFORMATION
  Report Type: Spontaneous
  Country: US (occurrence: US)
  Receive Date: 20140219
  Receipt Date: 20140315
  Transmission Date: 20141002
  Serious: Yes (Other)
  Sender: FDA-Public Use
  Company Number: US-JNJFOC-20140209230

PATIENT
  Age: 25 Year
  Sex: Female

DRUGS (2)
  1. BENADRYL CHILD ALLERGY PFT MSURE [Suspect]
     Indication: FOOD ALLERGY
     Route: 065
  2. BENADRYL CHILD ALLERGY PFT MSURE [Suspect]
     Indication: FOOD ALLERGY
     Route: 065

REACTIONS (2)
  - Unevaluable event [Unknown]
  - Therapeutic response decreased [Unknown]
